FAERS Safety Report 5211442-9 (Version None)
Quarter: 2007Q1

REPORT INFORMATION
  Report Type: 
  Country: None (occurrence: None)
  Receive Date: 20070112
  Receipt Date: 20070102
  Transmission Date: 20070707
  Serious: Yes (Hospitalization)
  Sender: FDA-Public Use
  Company Number: HQWYE548105JAN07

PATIENT
  Sex: Female

DRUGS (2)
  1. FOLVITE [Suspect]
     Indication: FRONTAL LOBE EPILEPSY
     Dosage: UNSPECIFIED HIGH DOSES; SEE IMAGE
  2. CARBAMAZEPINE [Suspect]
     Indication: FRONTAL LOBE EPILEPSY
     Dosage: UNSPECIFIED DOSE, ONLY AT BEDTIME; SEE IMAGE

REACTIONS (3)
  - CONDITION AGGRAVATED [None]
  - DRUG EXPOSURE DURING PREGNANCY [None]
  - FRONTAL LOBE EPILEPSY [None]
